FAERS Safety Report 13926260 (Version 3)
Quarter: 2018Q4

REPORT INFORMATION
  Report Type: Spontaneous
  Country: US (occurrence: US)
  Receive Date: 20170831
  Receipt Date: 20181126
  Transmission Date: 20190204
  Serious: Yes (Hospitalization)
  Sender: FDA-Public Use
  Company Number: US-DSJP-DSU-2017-133466

PATIENT

DRUGS (1)
  1. BENICAR HCT [Suspect]
     Active Substance: HYDROCHLOROTHIAZIDE\OLMESARTAN MEDOXOMIL
     Indication: PRODUCT USED FOR UNKNOWN INDICATION
     Dosage: 20-12.5MG , QD
     Route: 048
     Dates: start: 20070101, end: 20170608

REACTIONS (10)
  - Abnormal loss of weight [Recovered/Resolved]
  - Adenoma benign [Unknown]
  - Hypotension [Unknown]
  - Diverticulum intestinal [Unknown]
  - Enterovesical fistula [Unknown]
  - Staphylococcal infection [Unknown]
  - Lower gastrointestinal haemorrhage [Recovered/Resolved]
  - Colitis [Unknown]
  - Haemorrhoids [Unknown]
  - Acute kidney injury [Unknown]

NARRATIVE: CASE EVENT DATE: 20120707
